FAERS Safety Report 8004649-9 (Version None)
Quarter: 2011Q4

REPORT INFORMATION
  Report Type: 
  Country: None (occurrence: None)
  Receive Date: 20111223
  Receipt Date: 20111214
  Transmission Date: 20120403
  Serious: Yes (Hospitalization)
  Sender: FDA-Public Use
  Company Number: DK-JNJFOC-20111206631

PATIENT
  Sex: Female
  Weight: 76 kg

DRUGS (1)
  1. REMICADE [Suspect]
     Indication: CROHN'S DISEASE
     Dosage: 6-8 WEEKS, 100 MG VIAL
     Route: 042
     Dates: start: 20101028, end: 20111005

REACTIONS (5)
  - PARAESTHESIA [None]
  - DEMYELINATION [None]
  - MATERNAL EXPOSURE DURING PREGNANCY [None]
  - DIPLOPIA [None]
  - POLYNEUROPATHY [None]
